FAERS Safety Report 17494250 (Version 5)
Quarter: 2020Q3

REPORT INFORMATION
  Report Type: Spontaneous
  Country: RU (occurrence: RU)
  Receive Date: 20200304
  Receipt Date: 20200806
  Transmission Date: 20201102
  Serious: Yes (Other)
  Sender: FDA-Public Use
  Company Number: RU-ROCHE-2555947

PATIENT
  Age: 38 Year
  Sex: Male

DRUGS (26)
  1. IBRUTINIB [Suspect]
     Active Substance: IBRUTINIB
     Route: 065
     Dates: start: 201906
  2. ITRACONAZOLE. [Suspect]
     Active Substance: ITRACONAZOLE
     Indication: PRODUCT USED FOR UNKNOWN INDICATION
     Route: 065
  3. MYCOPHENOLATE MOFETIL. [Suspect]
     Active Substance: MYCOPHENOLATE MOFETIL
     Indication: PROPHYLAXIS AGAINST GRAFT VERSUS HOST DISEASE
     Route: 065
  4. FLUDARABINE [Suspect]
     Active Substance: FLUDARABINE PHOSPHATE
     Indication: DIFFUSE LARGE B-CELL LYMPHOMA
  5. PREDNISOLONE. [Suspect]
     Active Substance: PREDNISOLONE
     Route: 065
     Dates: start: 201712, end: 201803
  6. ACELLBIA [Suspect]
     Active Substance: RITUXIMAB
     Route: 065
     Dates: start: 201503
  7. CYCLOPHOSPHAMIDE. [Suspect]
     Active Substance: CYCLOPHOSPHAMIDE
     Indication: PROPHYLAXIS AGAINST GRAFT VERSUS HOST DISEASE
     Route: 065
     Dates: start: 201503
  8. ZYVOX [Suspect]
     Active Substance: LINEZOLID
     Indication: PRODUCT USED FOR UNKNOWN INDICATION
     Route: 065
  9. VORICONAZOLE. [Suspect]
     Active Substance: VORICONAZOLE
     Indication: CHRONIC LYMPHOCYTIC LEUKAEMIA
     Route: 065
  10. POSACONAZOLE [Suspect]
     Active Substance: POSACONAZOLE
     Indication: PRODUCT USED FOR UNKNOWN INDICATION
     Route: 065
  11. ERTAPENEM. [Suspect]
     Active Substance: ERTAPENEM SODIUM
     Indication: PRODUCT USED FOR UNKNOWN INDICATION
     Route: 065
  12. TACROLIMUS. [Suspect]
     Active Substance: TACROLIMUS
     Indication: PROPHYLAXIS AGAINST GRAFT VERSUS HOST DISEASE
     Dosage: TREATMENT STOPPED ON +100 DAY
     Route: 065
  13. BENDAMUSTINE [Suspect]
     Active Substance: BENDAMUSTINE
     Indication: CHRONIC LYMPHOCYTIC LEUKAEMIA
     Route: 065
     Dates: start: 201408, end: 201702
  14. FLUDARABINE [Suspect]
     Active Substance: FLUDARABINE PHOSPHATE
     Indication: CHRONIC LYMPHOCYTIC LEUKAEMIA
     Route: 065
     Dates: start: 201503, end: 201702
  15. PREDNISOLONE. [Suspect]
     Active Substance: PREDNISOLONE
     Indication: CHRONIC LYMPHOCYTIC LEUKAEMIA
     Route: 065
     Dates: start: 2016, end: 2016
  16. PREDNISOLONE. [Suspect]
     Active Substance: PREDNISOLONE
     Indication: GRAFT VERSUS HOST DISEASE
     Route: 065
     Dates: start: 201712, end: 201803
  17. MERONEM [Suspect]
     Active Substance: MEROPENEM
     Indication: CHRONIC LYMPHOCYTIC LEUKAEMIA
     Route: 065
  18. CYCLOPHOSPHANE [Suspect]
     Active Substance: CYCLOPHOSPHAMIDE
     Indication: PROPHYLAXIS AGAINST GRAFT VERSUS HOST DISEASE
     Route: 065
  19. GANCICLOVIR. [Suspect]
     Active Substance: GANCICLOVIR
     Indication: CHRONIC LYMPHOCYTIC LEUKAEMIA
     Route: 065
  20. BENDAMUSTINE [Suspect]
     Active Substance: BENDAMUSTINE
     Indication: DIFFUSE LARGE B-CELL LYMPHOMA
  21. DOXORUBICIN HYDROCHLORIDE. [Suspect]
     Active Substance: DOXORUBICIN HYDROCHLORIDE
     Indication: CHRONIC LYMPHOCYTIC LEUKAEMIA
     Dosage: TREATMENT STOPPED ON +100 DAY
     Route: 065
  22. VINCRISTINE [Suspect]
     Active Substance: VINCRISTINE
     Indication: CHRONIC LYMPHOCYTIC LEUKAEMIA
     Route: 065
  23. IBRUTINIB [Suspect]
     Active Substance: IBRUTINIB
     Indication: DIFFUSE LARGE B-CELL LYMPHOMA
     Route: 065
     Dates: start: 2017, end: 201806
  24. TYGACIL [Suspect]
     Active Substance: TIGECYCLINE
     Indication: PRODUCT USED FOR UNKNOWN INDICATION
     Route: 065
  25. ACELLBIA [Suspect]
     Active Substance: RITUXIMAB
     Indication: CHRONIC LYMPHOCYTIC LEUKAEMIA
     Route: 065
     Dates: start: 201408
  26. ACELLBIA [Suspect]
     Active Substance: RITUXIMAB
     Route: 065
     Dates: start: 201601

REACTIONS (12)
  - Richter^s syndrome [Unknown]
  - Cytomegalovirus infection reactivation [Unknown]
  - Pneumonia pseudomonal [Unknown]
  - Aspergillus infection [Unknown]
  - Acute graft versus host disease [Recovering/Resolving]
  - Product use in unapproved indication [Unknown]
  - Sinusitis [Unknown]
  - Transplant dysfunction [Recovered/Resolved]
  - Sepsis [Unknown]
  - Graft versus host disease in skin [Unknown]
  - Graft versus host disease in eye [Recovering/Resolving]
  - Pneumonia bacterial [Unknown]

NARRATIVE: CASE EVENT DATE: 201603
